FAERS Safety Report 7849811-0 (Version None)
Quarter: 2011Q4

REPORT INFORMATION
  Report Type: 
  Country: None (occurrence: None)
  Receive Date: 20111026
  Receipt Date: 20111012
  Transmission Date: 20120403
  Serious: No
  Sender: FDA-Public Use
  Company Number: US-ROXANE LABORATORIES, INC.-2011-RO-01454RO

PATIENT
  Age: 69 Year
  Sex: Male

DRUGS (25)
  1. CRESTOR [Concomitant]
     Indication: BLOOD CHOLESTEROL INCREASED
     Dosage: 40 MG
  2. NOVOLIN 70/30 [Concomitant]
     Indication: DIABETES MELLITUS
  3. NITROGLYCERIN [Concomitant]
     Indication: CHEST PAIN
  4. IPRATROPIUM BROMIDE [Concomitant]
     Indication: CHRONIC OBSTRUCTIVE PULMONARY DISEASE
  5. DALIRESP [Suspect]
     Indication: CHRONIC OBSTRUCTIVE PULMONARY DISEASE
     Dosage: 500 MCG
     Route: 048
     Dates: start: 20110927
  6. EFFIENT [Concomitant]
     Indication: ANTICOAGULANT THERAPY
     Dosage: 10 MG
  7. OMEPRAZOLE [Concomitant]
     Indication: GASTROOESOPHAGEAL REFLUX DISEASE
  8. HYDROCHLOROTHIAZIDE [Concomitant]
     Indication: HYPERTENSION
     Dosage: 25 MG
  9. PULMICORT [Concomitant]
     Indication: CHRONIC OBSTRUCTIVE PULMONARY DISEASE
     Dosage: 180 MCG
  10. OMEPRAZOLE [Concomitant]
     Indication: HIATUS HERNIA
     Dosage: 40 MCG
  11. VITAMIN B-12 [Concomitant]
     Dosage: 500 MG
  12. SERTRALINE HYDROCHLORIDE [Concomitant]
     Indication: ANXIETY
     Dosage: 100 MG
  13. NOVOLIN R [Concomitant]
     Indication: DIABETES MELLITUS
  14. ALPRAZOLAM [Concomitant]
     Dosage: 0.5 MG
  15. ASPIRIN [Concomitant]
     Dosage: 81 MG
  16. XALATAN [Concomitant]
     Indication: GLAUCOMA
     Route: 031
  17. UROXATRAL [Concomitant]
     Indication: BENIGN PROSTATIC HYPERPLASIA
     Dosage: 10 MG
  18. SINGULAIR [Concomitant]
     Indication: CHRONIC OBSTRUCTIVE PULMONARY DISEASE
     Dosage: 10 MG
  19. PREDNISONE [Suspect]
     Indication: CHRONIC OBSTRUCTIVE PULMONARY DISEASE
     Dosage: 20 MG
     Route: 048
     Dates: start: 20110927
  20. LISINOPRIL [Concomitant]
     Indication: HYPERTENSION
     Dosage: 20 MG
  21. DILTIAZEM HCL [Concomitant]
     Indication: HYPERTENSION
     Dosage: 180 MG
  22. ALPRAZOLAM [Concomitant]
     Indication: ANXIETY
     Dosage: 0.5 MG
  23. ALBUTEROL [Concomitant]
     Indication: CHRONIC OBSTRUCTIVE PULMONARY DISEASE
     Dosage: 90 MCG
  24. GABAPENTIN [Concomitant]
     Indication: PAIN IN EXTREMITY
     Dosage: 2400 MG
  25. FORADIL [Concomitant]
     Indication: CHRONIC OBSTRUCTIVE PULMONARY DISEASE
     Dosage: 12 MCG

REACTIONS (1)
  - BLOOD GLUCOSE INCREASED [None]
